FAERS Safety Report 18321832 (Version 8)
Quarter: 2021Q2

REPORT INFORMATION
  Report Type: Other
  Country: DE (occurrence: DE)
  Receive Date: 20200929
  Receipt Date: 20210402
  Transmission Date: 20210717
  Serious: Yes (Hospitalization, Other)
  Sender: FDA-Public Use
  Company Number: DE-ROCHE-2683399

PATIENT
  Age: 79 Year
  Sex: Male
  Weight: 76 kg

DRUGS (6)
  1. CANDESARTAN CILEXETIL. [Concomitant]
     Active Substance: CANDESARTAN CILEXETIL
     Indication: HYPERTENSION
     Route: 048
  2. TILIDIN [Concomitant]
     Active Substance: NALOXONE HYDROCHLORIDE\TILIDINE HYDROCHLORIDE
     Indication: NON-SMALL CELL LUNG CANCER METASTATIC
     Route: 048
     Dates: start: 20200629
  3. ATEZOLIZUMAB. [Suspect]
     Active Substance: ATEZOLIZUMAB
     Indication: NON-SMALL CELL LUNG CANCER
     Route: 042
     Dates: start: 20190808
  4. XIPAMID [Concomitant]
     Active Substance: XIPAMIDE
     Indication: HYPERTENSION
     Route: 048
  5. PREGABALIN. [Suspect]
     Active Substance: PREGABALIN
     Indication: TUMOUR PAIN
     Route: 048
     Dates: start: 20200603, end: 20200629
  6. ASPIRIN. [Concomitant]
     Active Substance: ASPIRIN
     Indication: PROPHYLAXIS
     Route: 048

REACTIONS (12)
  - Cardiac failure [Not Recovered/Not Resolved]
  - Pleural effusion [Not Recovered/Not Resolved]
  - Obstruction gastric [Recovering/Resolving]
  - Intra-abdominal haematoma [Recovered/Resolved]
  - Fatigue [Not Recovered/Not Resolved]
  - Oedema peripheral [Recovered/Resolved]
  - Insomnia [Not Recovered/Not Resolved]
  - Pruritus [Recovered/Resolved]
  - Bronchial disorder [Recovered/Resolved]
  - Hypothyroidism [Not Recovered/Not Resolved]
  - Arthralgia [Recovering/Resolving]
  - Nausea [Recovered/Resolved]

NARRATIVE: CASE EVENT DATE: 20190828
